FAERS Safety Report 8504761-1 (Version None)
Quarter: 2012Q3

REPORT INFORMATION
  Report Type: 
  Country: None (occurrence: None)
  Receive Date: 20120712
  Receipt Date: 20120706
  Transmission Date: 20120928
  Serious: Yes (Hospitalization)
  Sender: FDA-Public Use
  Company Number: CN-BRISTOL-MYERS SQUIBB COMPANY-16658734

PATIENT
  Age: 84 Year
  Sex: Male

DRUGS (8)
  1. ACARBOSE [Suspect]
     Indication: TYPE 2 DIABETES MELLITUS
  2. NIFEDIPINE [Concomitant]
  3. INSULIN [Suspect]
     Indication: TYPE 2 DIABETES MELLITUS
  4. ONGLYZA [Suspect]
     Indication: TYPE 2 DIABETES MELLITUS
     Dosage: 1 DF : 1TAB
     Route: 048
     Dates: start: 20120501
  5. PLAVIX [Concomitant]
  6. NOVOLIN 70/30 [Concomitant]
     Dosage: MORNING(28U) EVENING(26U)
  7. ACARBOSE [Concomitant]
  8. IMDUR [Concomitant]

REACTIONS (2)
  - DEHYDRATION [None]
  - DIARRHOEA [None]
